FAERS Safety Report 23079164 (Version 2)
Quarter: 2023Q4

REPORT INFORMATION
  Report Type: Spontaneous
  Country: FR (occurrence: FR)
  Receive Date: 20231018
  Receipt Date: 20231024
  Transmission Date: 20240110
  Serious: Yes (Other)
  Sender: FDA-Public Use
  Company Number: None

PATIENT
  Age: 67 Year
  Sex: Female

DRUGS (5)
  1. LINEZOLID [Suspect]
     Active Substance: LINEZOLID
     Dosage: 1200 MG, 1X/DAY
     Route: 042
     Dates: start: 20230923, end: 20231002
  2. VALACYCLOVIR HYDROCHLORIDE [Concomitant]
     Active Substance: VALACYCLOVIR HYDROCHLORIDE
     Indication: Antiviral prophylaxis
     Dosage: 1000 MG, 1X/DAY
     Route: 048
     Dates: start: 20230919, end: 20231002
  3. POSACONAZOLE [Concomitant]
     Active Substance: POSACONAZOLE
     Indication: Lung disorder
     Dosage: 300 MG, 1X/DAY
     Route: 048
     Dates: start: 20230919, end: 20231004
  4. PIPERACILLIN [Concomitant]
     Active Substance: PIPERACILLIN
     Indication: Pyelonephritis
     Dosage: 4 G, 3X/DAY
     Route: 042
     Dates: start: 20230912
  5. VYXEOS [Concomitant]
     Active Substance: CYTARABINE\DAUNORUBICIN
     Indication: Acute myeloid leukaemia
     Dosage: 76 MG
     Route: 042
     Dates: start: 20230919

REACTIONS (2)
  - Hyperlactacidaemia [Not Recovered/Not Resolved]
  - Off label use [Unknown]

NARRATIVE: CASE EVENT DATE: 20230923
